FAERS Safety Report 6881961-8 (Version None)
Quarter: 2010Q3

REPORT INFORMATION
  Report Type: 
  Country: None (occurrence: None)
  Receive Date: 20100727
  Receipt Date: 20100301
  Transmission Date: 20110219
  Serious: No
  Sender: FDA-Public Use
  Company Number: US-MYLANLABS-2010S1003621

PATIENT
  Sex: Female

DRUGS (4)
  1. LEVOTHYROXINE SODIUM [Suspect]
     Indication: HYPOTHYROIDISM
     Route: 048
     Dates: start: 19960101
  2. CLONAZEPAM [Suspect]
     Indication: NEUROPATHY PERIPHERAL
     Route: 048
     Dates: start: 20080101
  3. CIPROFLOXACIN [Suspect]
     Indication: URINARY TRACT INFECTION
     Route: 048
  4. HYDROCODONE BITARTRATE [Concomitant]
     Indication: PAIN

REACTIONS (2)
  - ALLERGY TEST POSITIVE [None]
  - REACTION TO DRUG EXCIPIENTS [None]
